FAERS Safety Report 8967183 (Version 1)
Quarter: 2012Q4

REPORT INFORMATION
  Report Type: Report from Study
  Country: TH (occurrence: TH)
  Receive Date: 20121214
  Receipt Date: 20121214
  Transmission Date: 20130627
  Serious: Yes (Hospitalization, Other)
  Sender: FDA-Public Use
  Company Number: TH-PFIZER INC-2012309606

PATIENT
  Age: 36 Year
  Sex: Female
  Weight: 80 kg

DRUGS (11)
  1. METHYLPREDNISOLONE SODIUM SUCCINATE [Suspect]
     Indication: LUPUS NEPHRITIS
     Dosage: UNK
     Route: 042
  2. OCRELIZUMAB [Suspect]
     Indication: NEPHRITIS SYSTEMIC LUPUS ERYTHEMATOSUS
     Dosage: 1000 mg, 1 in 16 wk
     Route: 042
     Dates: start: 20080529
  3. OCRELIZUMAB [Suspect]
     Dosage: UNK
  4. MYCOPHENOLATE MOFETIL [Suspect]
     Indication: NEPHRITIS SYSTEMIC LUPUS ERYTHEMATOSUS
     Dosage: 750 mg, 2x/day
     Route: 048
     Dates: start: 20080712, end: 20080718
  5. PREDNISOLONE [Suspect]
     Indication: NEPHRITIS SYSTEMIC LUPUS ERYTHEMATOSUS
     Dosage: 25 mg, 1x/day
     Route: 048
     Dates: start: 20080711
  6. PREDNISOLONE [Suspect]
     Dosage: 15 mg, 1x/day
     Route: 048
     Dates: start: 20080718
  7. CALCIUM CARBONATE [Concomitant]
     Dosage: 1g, UNK
     Dates: start: 20050328
  8. ENALAPRIL [Concomitant]
     Dosage: 10 mg, UNK
     Dates: start: 20070411
  9. FUROSEMIDE [Concomitant]
     Dosage: 40 mg, UNK
     Dates: start: 20080618
  10. AMLODIPINE [Concomitant]
     Dosage: 15 mg, UNK
     Dates: start: 20080611
  11. OMEPRAZOLE [Concomitant]
     Dosage: 20 mg, UNK
     Dates: start: 20070214

REACTIONS (2)
  - Herpes virus infection [Recovered/Resolved]
  - Deep vein thrombosis [Recovered/Resolved with Sequelae]
